FAERS Safety Report 19200763 (Version 1)
Quarter: 2021Q2

REPORT INFORMATION
  Report Type: Spontaneous
  Country: US (occurrence: US)
  Receive Date: 20210430
  Receipt Date: 20210430
  Transmission Date: 20210717
  Serious: No
  Sender: FDA-Public Use
  Company Number: US-SCIEGENPHARMA-2021SCISPO00402

PATIENT
  Age: 37 Year
  Sex: Female
  Weight: 94.5 kg

DRUGS (1)
  1. ARIPIPRAZOLE. [Suspect]
     Active Substance: ARIPIPRAZOLE
     Indication: BIPOLAR I DISORDER
     Route: 065

REACTIONS (1)
  - Off label use [Unknown]
